FAERS Safety Report 14934249 (Version 1)
Quarter: 2018Q2

REPORT INFORMATION
  Report Type: Spontaneous
  Country: FR (occurrence: FR)
  Receive Date: 20180524
  Receipt Date: 20180524
  Transmission Date: 20180711
  Serious: Yes (Hospitalization)
  Sender: FDA-Public Use
  Company Number: FR-PFIZER INC-2018208076

PATIENT
  Age: 62 Year
  Sex: Male
  Weight: 97 kg

DRUGS (3)
  1. EFFEXOR [Suspect]
     Active Substance: VENLAFAXINE HYDROCHLORIDE
     Dosage: 90 DF, UNK
     Route: 048
     Dates: start: 20180406
  2. ACTISKENAN [Suspect]
     Active Substance: MORPHINE SULFATE
     Dosage: 15 DF, UNK
     Route: 048
     Dates: start: 20180406
  3. STILNOX [Suspect]
     Active Substance: ZOLPIDEM TARTRATE
     Dosage: 15 DF, UNK
     Route: 048
     Dates: start: 20180406

REACTIONS (5)
  - Altered state of consciousness [Recovered/Resolved]
  - Cardiogenic shock [Recovering/Resolving]
  - Toxicity to various agents [Recovered/Resolved]
  - Hepatocellular injury [Recovering/Resolving]
  - Renal failure [Recovering/Resolving]

NARRATIVE: CASE EVENT DATE: 20180406
